FAERS Safety Report 7332567-8 (Version None)
Quarter: 2011Q1

REPORT INFORMATION
  Report Type: 
  Country: None (occurrence: None)
  Receive Date: 20110304
  Receipt Date: 20110221
  Transmission Date: 20110831
  Serious: Yes (Other)
  Sender: FDA-Public Use
  Company Number: PHHY2009DE51724

PATIENT
  Sex: Female
  Weight: 68 kg

DRUGS (6)
  1. LYRICA [Concomitant]
  2. VALPERON BETA [Concomitant]
  3. DIAZEPAM [Concomitant]
  4. RADIOTHERAPY [Concomitant]
     Dosage: UNK
     Dates: start: 20090629
  5. LETROZOLE [Suspect]
     Indication: BREAST CANCER
     Dosage: 2.5 MG/DAY
     Route: 048
     Dates: start: 20040610, end: 20091014
  6. TAVOR [Concomitant]

REACTIONS (8)
  - DIPLOPIA [None]
  - RASH GENERALISED [None]
  - SYNCOPE [None]
  - MYALGIA [None]
  - FATIGUE [None]
  - PRURITUS [None]
  - LISTLESS [None]
  - VISUAL IMPAIRMENT [None]
